FAERS Safety Report 12741667 (Version 1)
Quarter: 2016Q3

REPORT INFORMATION
  Report Type: Report from Study
  Country: US (occurrence: US)
  Receive Date: 20160914
  Receipt Date: 20160914
  Transmission Date: 20161109
  Serious: Yes (Hospitalization)
  Sender: FDA-Public Use
  Company Number: US-ASTRAZENECA-2016SE28828

PATIENT
  Age: 28008 Day
  Sex: Female
  Weight: 63.5 kg

DRUGS (15)
  1. SYMVASTATIN [Concomitant]
     Indication: BLOOD CHOLESTEROL ABNORMAL
     Route: 048
  2. CARDIA XT [Concomitant]
     Indication: CARDIAC DISORDER
     Route: 048
     Dates: start: 201410
  3. VENTOLIN HFA [Concomitant]
     Active Substance: ALBUTEROL SULFATE
     Indication: CHRONIC OBSTRUCTIVE PULMONARY DISEASE
     Dosage: 200E MG, VERY 4 - 6 HOURS
     Route: 055
  4. ADVAIR HFA [Concomitant]
     Active Substance: FLUTICASONE PROPIONATE\SALMETEROL XINAFOATE
     Indication: CHRONIC OBSTRUCTIVE PULMONARY DISEASE
     Dosage: 250/50MCG OFF AND ON
     Route: 055
  5. CITALOPRAM [Concomitant]
     Active Substance: CITALOPRAM HYDROBROMIDE
     Indication: PANIC ATTACK
     Route: 048
  6. TUDORZA PRESSAIR [Suspect]
     Active Substance: ACLIDINIUM BROMIDE
     Indication: CHRONIC OBSTRUCTIVE PULMONARY DISEASE
     Dosage: 400 MCG ONE INHALATION TWICE A DAY
     Route: 055
     Dates: start: 2014
  7. SPIRONOLACTONE. [Concomitant]
     Active Substance: SPIRONOLACTONE
     Indication: FLUID RETENTION
     Dosage: 25.0MG UNKNOWN
     Route: 048
  8. AMITIZO [Concomitant]
     Indication: CONSTIPATION
     Route: 048
     Dates: start: 201410
  9. ALBUTEROL. [Concomitant]
     Active Substance: ALBUTEROL
     Indication: CHRONIC OBSTRUCTIVE PULMONARY DISEASE
     Dosage: 0.083 PERCENT/2.5 MG/3ML, EVERY FOUR HOURS
     Route: 055
     Dates: start: 20150904
  10. LEVOTHYROXINE. [Concomitant]
     Active Substance: LEVOTHYROXINE
     Indication: THYROID DISORDER
     Route: 048
  11. CARDIA XT [Concomitant]
     Indication: LOWER RESPIRATORY TRACT INFECTION
     Route: 048
     Dates: start: 201410
  12. BABY ASPIRIN [Concomitant]
     Active Substance: ASPIRIN
     Route: 048
  13. XANAX [Concomitant]
     Active Substance: ALPRAZOLAM
     Indication: NERVOUS SYSTEM DISORDER
     Dosage: 0.25MG AS REQUIRED
     Route: 048
     Dates: start: 2014
  14. OXYGEN. [Concomitant]
     Active Substance: OXYGEN
     Indication: CHRONIC OBSTRUCTIVE PULMONARY DISEASE
     Dosage: 2.0L CONTINUOUSLY
     Route: 045
  15. MONTELUKAST [Concomitant]
     Active Substance: MONTELUKAST SODIUM
     Indication: MULTIPLE ALLERGIES
     Dosage: 10.0MG UNKNOWN
     Route: 048

REACTIONS (17)
  - Feeling abnormal [Unknown]
  - Malaise [Not Recovered/Not Resolved]
  - Nervousness [Unknown]
  - Nasal dryness [Unknown]
  - Extra dose administered [Unknown]
  - Tremor [Not Recovered/Not Resolved]
  - Product quality issue [Unknown]
  - Angina pectoris [Unknown]
  - Dizziness [Not Recovered/Not Resolved]
  - Malaise [Unknown]
  - Drug dose omission [Not Recovered/Not Resolved]
  - Dyspnoea [Unknown]
  - Mental disorder [Unknown]
  - Memory impairment [Unknown]
  - Panic attack [Unknown]
  - Diabetes mellitus [Unknown]
  - Chest discomfort [Unknown]

NARRATIVE: CASE EVENT DATE: 20141014
